FAERS Safety Report 23345235 (Version 1)
Quarter: 2023Q4

REPORT INFORMATION
  Report Type: Spontaneous
  Country: DK (occurrence: DK)
  Receive Date: 20231228
  Receipt Date: 20231228
  Transmission Date: 20240110
  Serious: Yes (Hospitalization, Other)
  Sender: FDA-Public Use
  Company Number: DK-TILLOTTSAB-20230639

PATIENT
  Age: 22 Year
  Sex: Male

DRUGS (1)
  1. MESALAMINE [Suspect]
     Active Substance: MESALAMINE
     Indication: Colitis ulcerative
     Dosage: 2 GRAM, QD
     Route: 048

REACTIONS (2)
  - Pulmonary mass [Recovered/Resolved]
  - Bile duct stenosis [Recovered/Resolved]
